FAERS Safety Report 16505615 (Version 3)
Quarter: 2019Q4

REPORT INFORMATION
  Report Type: Report from Study
  Country: US (occurrence: US)
  Receive Date: 20190701
  Receipt Date: 20191230
  Transmission Date: 20200122
  Serious: No
  Sender: FDA-Public Use
  Company Number: US-CLOVIS ONCOLOGY-CLO-2019-000536

PATIENT
  Age: 66 Year
  Sex: Female

DRUGS (4)
  1. RUBRACA [Suspect]
     Active Substance: RUCAPARIB CAMSYLATE
     Indication: OVARIAN CANCER
     Dosage: 600 MG, BID
     Route: 048
     Dates: start: 20190315, end: 20190430
  2. RUBRACA [Suspect]
     Active Substance: RUCAPARIB CAMSYLATE
     Indication: OVARIAN CANCER
     Dosage: 600 MG, BID
     Route: 048
     Dates: start: 20190307
  3. RUBRACA [Suspect]
     Active Substance: RUCAPARIB CAMSYLATE
     Dosage: 600 MG, BID
     Route: 048
     Dates: start: 20190501
  4. RUBRACA [Suspect]
     Active Substance: RUCAPARIB CAMSYLATE
     Dosage: 600 MG, BID
     Route: 048
     Dates: start: 20190315

REACTIONS (13)
  - Dry skin [Recovered/Resolved]
  - Gastrointestinal pain [Unknown]
  - Pruritus [Unknown]
  - Vomiting [Recovering/Resolving]
  - Asthenia [Not Recovered/Not Resolved]
  - Product dose omission [Unknown]
  - Middle insomnia [Unknown]
  - Flatulence [Unknown]
  - Carbohydrate antigen 125 increased [Not Recovered/Not Resolved]
  - Back pain [Unknown]
  - Headache [Unknown]
  - Fatigue [Recovering/Resolving]
  - Diarrhoea [Not Recovered/Not Resolved]

NARRATIVE: CASE EVENT DATE: 2019
